FAERS Safety Report 9957078 (Version 1)
Quarter: 2014Q1

REPORT INFORMATION
  Report Type: Spontaneous
  Country: US (occurrence: US)
  Receive Date: 20140304
  Receipt Date: 20140304
  Transmission Date: 20141002
  Serious: No
  Sender: FDA-Public Use
  Company Number: US-ABBVIE-13P-163-1099894-00

PATIENT
  Age: 41 Year
  Sex: Female

DRUGS (7)
  1. HUMIRA [Suspect]
     Indication: PSORIATIC ARTHROPATHY
     Dates: start: 200910, end: 201010
  2. HUMIRA [Suspect]
  3. HUMIRA [Suspect]
     Dates: start: 201104, end: 201209
  4. LYRICA [Concomitant]
     Indication: NEUROPATHY PERIPHERAL
  5. DEFLONAC [Concomitant]
     Indication: PRODUCT USED FOR UNKNOWN INDICATION
  6. TAMOXIFEN [Concomitant]
     Indication: BREAST CANCER
  7. UTRAVATE [Concomitant]
     Indication: PSORIASIS

REACTIONS (5)
  - Skin discolouration [Not Recovered/Not Resolved]
  - Contusion [Unknown]
  - Weight decreased [Not Recovered/Not Resolved]
  - Red blood cell count decreased [Not Recovered/Not Resolved]
  - White blood cell count decreased [Not Recovered/Not Resolved]
